FAERS Safety Report 15198257 (Version 1)
Quarter: 2018Q3

REPORT INFORMATION
  Report Type: Spontaneous
  Country: US (occurrence: US)
  Receive Date: 20180725
  Receipt Date: 20180725
  Transmission Date: 20181010
  Serious: Yes (Other)
  Sender: FDA-Public Use
  Company Number: US-NOVOPROD-611970

PATIENT
  Sex: Female

DRUGS (1)
  1. NOVOLOG [Suspect]
     Active Substance: INSULIN ASPART
     Indication: PRODUCT USED FOR UNKNOWN INDICATION
     Dosage: UNK
     Route: 058

REACTIONS (9)
  - Loss of personal independence in daily activities [Unknown]
  - Piloerection [Unknown]
  - Malaise [Unknown]
  - Bedridden [Unknown]
  - Carpal tunnel syndrome [Unknown]
  - Fall [Unknown]
  - Reaction to preservatives [Unknown]
  - Influenza like illness [Unknown]
  - Unevaluable event [Unknown]
